FAERS Safety Report 10156452 (Version 1)
Quarter: 2014Q2

REPORT INFORMATION
  Report Type: Spontaneous
  Country: US (occurrence: None)
  Receive Date: 20140506
  Receipt Date: 20140506
  Transmission Date: 20141212
  Serious: Yes (Disabling)
  Sender: FDA-Public Use
  Company Number: None

PATIENT
  Age: 79 Year
  Sex: Female
  Weight: 95.26 kg

DRUGS (7)
  1. GELNIQUE [Suspect]
     Indication: URINARY INCONTINENCE
     Dosage: 1 PACKET DAILY,  ON SKIN
     Route: 061
     Dates: start: 20131126, end: 20140313
  2. GELNIQUE [Suspect]
     Indication: BLADDER DISORDER
     Dosage: 1 PACKET DAILY,  ON SKIN
     Route: 061
     Dates: start: 20131126, end: 20140313
  3. WARFARIN [Concomitant]
  4. AMLODIPINE [Concomitant]
  5. ATORVASTATIN [Concomitant]
  6. FUROSIMIDE [Concomitant]
  7. PROLIA [Concomitant]

REACTIONS (2)
  - Dry mouth [None]
  - Bladder dysfunction [None]
